FAERS Safety Report 11530278 (Version 1)
Quarter: 2015Q3

REPORT INFORMATION
  Report Type: Spontaneous
  Country: BA (occurrence: BA)
  Receive Date: 20150921
  Receipt Date: 20150921
  Transmission Date: 20151125
  Serious: Yes (Death, Other)
  Sender: FDA-Public Use
  Company Number: BA-JNJFOC-20150903898

PATIENT
  Age: 15 Year
  Sex: Male

DRUGS (2)
  1. REMICADE [Suspect]
     Active Substance: INFLIXIMAB
     Indication: CROHN^S DISEASE
     Route: 042
     Dates: start: 20150831, end: 20150831
  2. REMICADE [Suspect]
     Active Substance: INFLIXIMAB
     Indication: CROHN^S DISEASE
     Route: 042
     Dates: start: 20150817, end: 20150817

REACTIONS (9)
  - Subarachnoid haemorrhage [Unknown]
  - Lung infiltration [Unknown]
  - Brain oedema [Unknown]
  - Dizziness [Unknown]
  - Abscess [Unknown]
  - Ileus [Unknown]
  - Death [Fatal]
  - Pleural effusion [Unknown]
  - Drug hypersensitivity [Unknown]

NARRATIVE: CASE EVENT DATE: 201508
